FAERS Safety Report 21492404 (Version 1)
Quarter: 2022Q4

REPORT INFORMATION
  Report Type: Spontaneous
  Country: US (occurrence: US)
  Receive Date: 20221021
  Receipt Date: 20221021
  Transmission Date: 20230113
  Serious: No
  Sender: FDA-Public Use
  Company Number: US-SA-SAC20221017000446

PATIENT
  Age: 56 Year
  Sex: Female
  Weight: 82.5 kg

DRUGS (7)
  1. DUPIXENT [Suspect]
     Active Substance: DUPILUMAB
     Indication: Dermatitis atopic
     Dosage: 300 MG, QOW
     Route: 058
     Dates: start: 20220919
  2. ALBUTEROL SULFATE [Concomitant]
     Active Substance: ALBUTEROL SULFATE
  3. ESTRADIOL [Concomitant]
     Active Substance: ESTRADIOL
  4. ESTROGEL [Concomitant]
     Active Substance: ESTRADIOL
  5. PROGESTERONE [Concomitant]
     Active Substance: PROGESTERONE
  6. VITAMIN B12 [Concomitant]
     Active Substance: CYANOCOBALAMIN
  7. VITAMIN D3 [Concomitant]
     Active Substance: CHOLECALCIFEROL

REACTIONS (2)
  - Pruritus [Not Recovered/Not Resolved]
  - Therapeutic product effect incomplete [Unknown]
